FAERS Safety Report 21215247 (Version 1)
Quarter: 2022Q3

REPORT INFORMATION
  Report Type: Spontaneous
  Country: US (occurrence: None)
  Receive Date: 20220815
  Receipt Date: 20220815
  Transmission Date: 20221026
  Serious: Yes (Other)
  Sender: FDA-Public Use
  Company Number: None

PATIENT
  Sex: Male

DRUGS (3)
  1. HUMIRA [Suspect]
     Active Substance: ADALIMUMAB
     Indication: Hidradenitis
     Dosage: OTHER QUANTITY : 40 MG/0.4ML;?RX 2 INJECT 40MG UNDER THE SKIN (SUBCUTANEOUS INJECTION) EVERY WEEK ST
     Route: 058
     Dates: start: 20220315
  2. CLINDAMYCIN/BEN [Concomitant]
  3. DOXYCYCLINE HYCLATE [Concomitant]
     Active Substance: DOXYCYCLINE HYCLATE

REACTIONS (2)
  - Surgery [None]
  - Therapy interrupted [None]
